FAERS Safety Report 4269267-7 (Version None)
Quarter: 2004Q1

REPORT INFORMATION
  Report Type: 
  Country: None (occurrence: None)
  Receive Date: 20040109
  Receipt Date: 20031230
  Transmission Date: 20041129
  Serious: Yes (Hospitalization)
  Sender: FDA-Public Use
  Company Number: US-JNJFOC-20040100201

PATIENT
  Age: 60 Year
  Sex: Female

DRUGS (15)
  1. INFLIXIMAB (INFLIXIMAB, RECOMBINANT) LYOPHILIZED POWDER [Suspect]
     Indication: RHEUMATOID ARTHRITIS
     Dosage: INTRAVENOUS
     Route: 042
     Dates: start: 20011129, end: 20030213
  2. SPIRONOLACTONE [Concomitant]
  3. INSULIN [Concomitant]
  4. PROZASIN (PRAZOSIN HYDROCHLORIDE) [Concomitant]
  5. PREDNISONE [Concomitant]
  6. CELEBREX [Concomitant]
  7. TYLENOL [Concomitant]
  8. GLUCOTROL [Concomitant]
  9. GLUCOPHAGE [Concomitant]
  10. DARVOCET (PROPACET) [Concomitant]
  11. TYLENOL PM (TYLENOL PM) [Concomitant]
  12. TYLENOL [Concomitant]
  13. PRILOSEC [Concomitant]
  14. MULTIVITAMIN [Concomitant]
  15. KLOR-CON [Concomitant]

REACTIONS (2)
  - CEREBROVASCULAR ACCIDENT [None]
  - FACIAL PALSY [None]
